FAERS Safety Report 6801336-7 (Version None)
Quarter: 2010Q2

REPORT INFORMATION
  Report Type: 
  Country: None (occurrence: None)
  Receive Date: 20100629
  Receipt Date: 20100617
  Transmission Date: 20101027
  Serious: Yes (Hospitalization)
  Sender: FDA-Public Use
  Company Number: A0802665A

PATIENT
  Age: 67 Year
  Sex: Male

DRUGS (2)
  1. AVANDIA [Suspect]
     Indication: DIABETES MELLITUS
     Dosage: 4MG PER DAY
     Route: 048
     Dates: start: 20031016, end: 20070101
  2. AVANDAMET [Suspect]
     Route: 048
     Dates: start: 20040819

REACTIONS (6)
  - CARDIAC DISORDER [None]
  - CARDIOVASCULAR DISORDER [None]
  - CORONARY ARTERY DISEASE [None]
  - ISCHAEMIC CARDIOMYOPATHY [None]
  - PAIN [None]
  - TRANSIENT ISCHAEMIC ATTACK [None]
